FAERS Safety Report 7500725-5 (Version None)
Quarter: 2011Q2

REPORT INFORMATION
  Report Type: 
  Country: None (occurrence: None)
  Receive Date: 20110524
  Receipt Date: 20110511
  Transmission Date: 20111010
  Serious: Yes (Hospitalization)
  Sender: FDA-Public Use
  Company Number: PHHY2011DK39855

PATIENT
  Sex: Female

DRUGS (12)
  1. DIGOXIN [Suspect]
     Indication: ATRIAL FIBRILLATION
     Route: 048
  2. WARFARIN SODIUM [Suspect]
     Indication: THROMBOSIS PROPHYLAXIS
     Dates: start: 20070601, end: 20080508
  3. FUROSEMIDE [Concomitant]
     Indication: CARDIAC FAILURE CONGESTIVE
     Route: 048
  4. PAMOL [Concomitant]
     Indication: PAIN IN EXTREMITY
     Route: 048
     Dates: start: 20070717
  5. POTASSIUM CHLORIDE [Concomitant]
     Indication: SUPPLEMENTATION THERAPY
     Route: 048
  6. IMOZOP [Concomitant]
     Indication: INSOMNIA
     Route: 048
     Dates: start: 20070721
  7. METOPROLOL SUCCINATE [Concomitant]
     Indication: ATRIAL FIBRILLATION
     Route: 048
     Dates: start: 20070721
  8. LEUCOVORIN CALCIUM [Concomitant]
     Indication: RHEUMATOID ARTHRITIS
     Route: 048
     Dates: start: 20071204
  9. DIGOXIN [Suspect]
  10. METHOTREXATE [Suspect]
     Indication: RHEUMATOID ARTHRITIS
     Dates: start: 20071214
  11. UNIKALK BASIC [Concomitant]
     Indication: SUPPLEMENTATION THERAPY
     Route: 048
  12. NITROGLYCERIN [Concomitant]
     Indication: CHEST PAIN
     Route: 060
     Dates: start: 20071106

REACTIONS (4)
  - VOMITING [None]
  - WEIGHT DECREASED [None]
  - NAUSEA [None]
  - DECREASED APPETITE [None]
